FAERS Safety Report 10101982 (Version 1)
Quarter: 2014Q2

REPORT INFORMATION
  Report Type: Spontaneous
  Country: US (occurrence: US)
  Receive Date: 20140424
  Receipt Date: 20140424
  Transmission Date: 20141212
  Serious: Yes (Hospitalization)
  Sender: FDA-Public Use
  Company Number: US-BRISTOL-MYERS SQUIBB COMPANY-20624987

PATIENT
  Age: 53 Year
  Sex: Female

DRUGS (3)
  1. ORENCIA [Suspect]
     Dosage: INF
     Route: 042
     Dates: start: 20140326
  2. HYDROXYCHLOROQUINE [Concomitant]
  3. PREDNISONE [Concomitant]

REACTIONS (5)
  - Abdominal pain [Unknown]
  - Leukocytosis [Unknown]
  - Vomiting [Unknown]
  - Headache [Unknown]
  - Pyrexia [Unknown]
